FAERS Safety Report 8583457-4 (Version None)
Quarter: 2012Q3

REPORT INFORMATION
  Report Type: 
  Country: None (occurrence: None)
  Receive Date: 20120809
  Receipt Date: 20120606
  Transmission Date: 20120928
  Serious: Yes (Death)
  Sender: FDA-Public Use
  Company Number: FR-ROCHE-1095776

PATIENT
  Sex: Female

DRUGS (17)
  1. FLUOROURACIL [Suspect]
     Indication: PRODUCT USED FOR UNKNOWN INDICATION
     Dates: start: 20020617, end: 20031223
  2. FLUOROURACIL [Suspect]
     Dates: start: 20090505, end: 20100608
  3. AVASTIN [Suspect]
     Dates: start: 20090505, end: 20100608
  4. AVASTIN [Suspect]
     Dates: start: 20100629, end: 20100629
  5. OXALIPLATIN [Suspect]
     Indication: PRODUCT USED FOR UNKNOWN INDICATION
     Dates: start: 20050831, end: 20080910
  6. FLUOROURACIL [Suspect]
     Dates: start: 20110928, end: 20110928
  7. AVASTIN [Suspect]
     Indication: PRODUCT USED FOR UNKNOWN INDICATION
     Dates: start: 20050831, end: 20080910
  8. LEUCOVORIN CALCIUM [Suspect]
     Dates: start: 20110811, end: 20110914
  9. LEUCOVORIN CALCIUM [Suspect]
     Dates: start: 20090505, end: 20100608
  10. FLUOROURACIL [Suspect]
     Dates: start: 20110811, end: 20110914
  11. LEUCOVORIN CALCIUM [Suspect]
     Indication: PRODUCT USED FOR UNKNOWN INDICATION
     Dates: start: 20050831, end: 20080910
  12. LEUCOVORIN CALCIUM [Suspect]
     Dates: start: 20110928, end: 20110928
  13. FLUOROURACIL [Suspect]
     Dates: start: 20050831, end: 20080910
  14. CAPECITABINE [Suspect]
     Indication: PRODUCT USED FOR UNKNOWN INDICATION
     Dates: start: 20120123, end: 20120318
  15. LEUCOVORIN CALCIUM [Suspect]
     Indication: PRODUCT USED FOR UNKNOWN INDICATION
     Dates: start: 20020617, end: 20031223
  16. OXALIPLATIN [Suspect]
     Dates: start: 20090505, end: 20100608
  17. IRINOTECAN HCL [Suspect]
     Indication: PRODUCT USED FOR UNKNOWN INDICATION
     Dates: start: 20110811, end: 20110914

REACTIONS (6)
  - DIARRHOEA [None]
  - ASTHENIA [None]
  - DEATH [None]
  - ALOPECIA [None]
  - DECREASED APPETITE [None]
  - EPISTAXIS [None]
